FAERS Safety Report 21392101 (Version 1)
Quarter: 2022Q3

REPORT INFORMATION
  Report Type: Other
  Country: DE (occurrence: DE)
  Receive Date: 20220929
  Receipt Date: 20220929
  Transmission Date: 20221027
  Serious: Yes (Hospitalization, Other)
  Sender: FDA-Public Use
  Company Number: DE-ADRED-07472-01

PATIENT

DRUGS (10)
  1. ROPINIROLE HYDROCHLORIDE [Interacting]
     Active Substance: ROPINIROLE HYDROCHLORIDE
     Indication: Product used for unknown indication
     Dosage: 4 MILLIGRAM, AM (1-0-0-0)
     Route: 065
  2. RIVASTIGMINE [Interacting]
     Active Substance: RIVASTIGMINE
     Indication: Product used for unknown indication
     Dosage: 4.6 MILLIGRAM, AM (1-0-0-0)
     Route: 065
  3. DOMPERIDONE [Interacting]
     Active Substance: DOMPERIDONE
     Indication: Product used for unknown indication
     Dosage: 10 MILLIGRAM, TID, (1-1-1-0)
     Route: 065
  4. BENSERAZIDE\LEVODOPA [Interacting]
     Active Substance: BENSERAZIDE\LEVODOPA
     Indication: Product used for unknown indication
     Dosage: 25/100 MG, AM (1-0-0-0)
     Route: 065
  5. SCOPOLAMINE [Interacting]
     Active Substance: SCOPOLAMINE
     Indication: Product used for unknown indication
     Dosage: 0.33 MILLIGRAM
     Route: 065
  6. CARBIDOPA\LEVODOPA [Suspect]
     Active Substance: CARBIDOPA\LEVODOPA
     Indication: Product used for unknown indication
     Dosage: 25/100 MG, OD (0-0-1-0)
     Route: 065
  7. CARBIDOPA\ENTACAPONE\LEVODOPA [Interacting]
     Active Substance: CARBIDOPA\ENTACAPONE\LEVODOPA
     Indication: Product used for unknown indication
     Dosage: 25/200/100 MG, QID (1-1-1-1)
     Route: 065
  8. ESOMEPRAZOLE [Concomitant]
     Active Substance: ESOMEPRAZOLE
     Indication: Product used for unknown indication
     Dosage: 40 MILLIGRAM, AM, (1-0-0-0)
     Route: 065
  9. CHOLECALCIFEROL [Concomitant]
     Active Substance: CHOLECALCIFEROL
     Indication: Product used for unknown indication
     Dosage: 1000 INTERNATIONAL UNIT, AM (1-0-0-0)
     Route: 065
  10. FOLIC ACID [Concomitant]
     Active Substance: FOLIC ACID
     Indication: Product used for unknown indication
     Dosage: 5 MILLIGRAM, AM,(1-0-0-0)
     Route: 065

REACTIONS (8)
  - Disturbance in attention [Unknown]
  - Incorrect product dosage form administered [Unknown]
  - Labelled drug-drug interaction medication error [Unknown]
  - Craniocerebral injury [Unknown]
  - Aspiration [Unknown]
  - Thrombocytopenia [Unknown]
  - Fall [Unknown]
  - Vomiting [Unknown]
